FAERS Safety Report 19170573 (Version 1)
Quarter: 2021Q2

REPORT INFORMATION
  Report Type: Spontaneous
  Country: US (occurrence: US)
  Receive Date: 20210423
  Receipt Date: 20210423
  Transmission Date: 20210717
  Serious: No
  Sender: FDA-Public Use
  Company Number: US-JNJFOC-20210424072

PATIENT
  Age: 60 Year
  Sex: Male

DRUGS (9)
  1. IBUPROFEN. [Suspect]
     Active Substance: IBUPROFEN
     Indication: HYPERHIDROSIS
     Dosage: HE TOOK AT FIRST THEN TOOK 4 MORE
     Route: 065
     Dates: start: 202104
  2. IBUPROFEN. [Suspect]
     Active Substance: IBUPROFEN
     Indication: HEADACHE
     Route: 065
  3. IBUPROFEN. [Suspect]
     Active Substance: IBUPROFEN
     Indication: PHOTOPHOBIA
  4. IBUPROFEN. [Suspect]
     Active Substance: IBUPROFEN
     Indication: PALPITATIONS
  5. IBUPROFEN. [Suspect]
     Active Substance: IBUPROFEN
     Indication: PAIN
  6. IBUPROFEN. [Suspect]
     Active Substance: IBUPROFEN
     Indication: FEELING ABNORMAL
  7. COVID?19 VACCINE NOS. [Concomitant]
     Active Substance: COVID-19 VACCINE NOS
     Indication: PRODUCT USED FOR UNKNOWN INDICATION
     Route: 065
     Dates: start: 20210408, end: 20210408
  8. IBUPROFEN. [Suspect]
     Active Substance: IBUPROFEN
     Indication: VACCINATION COMPLICATION
  9. IBUPROFEN. [Suspect]
     Active Substance: IBUPROFEN
     Indication: ANXIETY

REACTIONS (2)
  - Product use in unapproved indication [Unknown]
  - Overdose [Unknown]

NARRATIVE: CASE EVENT DATE: 202104
